FAERS Safety Report 7205706-7 (Version None)
Quarter: 2010Q4

REPORT INFORMATION
  Report Type: 
  Country: None (occurrence: None)
  Receive Date: 20101231
  Receipt Date: 20101220
  Transmission Date: 20110411
  Serious: Yes (Hospitalization)
  Sender: FDA-Public Use
  Company Number: US-ACTELION-A-US2010-42968

PATIENT

DRUGS (2)
  1. BOSENTAN TABLET UNKNOWN US MG [Suspect]
     Indication: PULMONARY ARTERIAL HYPERTENSION
     Dosage: UNK
     Route: 048
     Dates: start: 20091124
  2. BOSENTAN TABLET UNKNOWN US MG [Suspect]
     Dosage: UNK
     Route: 048
     Dates: start: 20101212

REACTIONS (4)
  - HAEMOGLOBIN DECREASED [None]
  - HERPES ZOSTER [None]
  - MENINGITIS [None]
  - RENAL FAILURE [None]
